FAERS Safety Report 7506384-X (Version None)
Quarter: 2011Q2

REPORT INFORMATION
  Report Type: 
  Country: None (occurrence: None)
  Receive Date: 20110526
  Receipt Date: 20110517
  Transmission Date: 20111010
  Serious: Yes (Other)
  Sender: FDA-Public Use
  Company Number: US-ASTRAZENECA-2011SE23486

PATIENT
  Age: 75 Year
  Sex: Female

DRUGS (2)
  1. ANASTROZOLE [Concomitant]
  2. CRESTOR [Suspect]
     Route: 048

REACTIONS (2)
  - BREAST CANCER [None]
  - HEPATIC ENZYME INCREASED [None]
